FAERS Safety Report 7607611-0 (Version None)
Quarter: 2011Q3

REPORT INFORMATION
  Report Type: 
  Country: None (occurrence: None)
  Receive Date: 20110713
  Receipt Date: 20110215
  Transmission Date: 20111222
  Serious: Yes (Other)
  Sender: FDA-Public Use
  Company Number: PHHY2011US56604

PATIENT
  Sex: Female
  Weight: 56.689 kg

DRUGS (1)
  1. GILENYA [Suspect]
     Dosage: 1 DF, UNK
     Route: 048

REACTIONS (9)
  - DIZZINESS [None]
  - ASTHENIA [None]
  - HAEMATEMESIS [None]
  - MALAISE [None]
  - DISORIENTATION [None]
  - HYPERSOMNIA [None]
  - SPEECH DISORDER [None]
  - FATIGUE [None]
  - HEART RATE INCREASED [None]
